FAERS Safety Report 11906230 (Version 1)
Quarter: 2016Q1

REPORT INFORMATION
  Report Type: Spontaneous
  Country: US (occurrence: US)
  Receive Date: 20160111
  Receipt Date: 20160111
  Transmission Date: 20160526
  Serious: No
  Sender: FDA-Public Use
  Company Number: US-TEVA-609034USA

PATIENT
  Sex: Male

DRUGS (1)
  1. OMEGA-3 ACIDS [Suspect]
     Active Substance: OMEGA-3 FATTY ACIDS
     Indication: BLOOD TRIGLYCERIDES ABNORMAL
     Dosage: 4000 MILLIGRAM DAILY; TAKE TWO IN THE MORNING AND TWO AT NIGHT
     Route: 065
     Dates: start: 201501, end: 201504

REACTIONS (7)
  - Cataract [Unknown]
  - Visual acuity reduced [Unknown]
  - Abdominal distension [Unknown]
  - Vision blurred [Unknown]
  - Hyperchlorhydria [Unknown]
  - Flatulence [Unknown]
  - Dysgeusia [Unknown]

NARRATIVE: CASE EVENT DATE: 2015
